FAERS Safety Report 16342771 (Version 1)
Quarter: 2019Q2

REPORT INFORMATION
  Report Type: Spontaneous
  Country: US (occurrence: US)
  Receive Date: 20190416
  Receipt Date: 20190416
  Transmission Date: 20190711
  Serious: No
  Sender: FDA-Public Use
  Company Number: None

PATIENT
  Age: 59 Year
  Sex: Female

DRUGS (1)
  1. LETAIRIS [Suspect]
     Active Substance: AMBRISENTAN
     Indication: CONGENITAL CARDIOVASCULAR ANOMALY
     Dosage: ?TREATMENT DATES:?START:  14-MAR-2019?STOP:  19-APR-2019
     Route: 048
     Dates: start: 20190314

REACTIONS (6)
  - Sinus disorder [None]
  - Malaise [None]
  - Oedema peripheral [None]
  - Iron deficiency anaemia [None]
  - Abdominal pain upper [None]
  - Condition aggravated [None]

NARRATIVE: CASE EVENT DATE: 20190416
